FAERS Safety Report 7139204-6 (Version None)
Quarter: 2010Q4

REPORT INFORMATION
  Report Type: 
  Country: None (occurrence: None)
  Receive Date: 20101202
  Receipt Date: 20101202
  Transmission Date: 20110411
  Serious: Yes (Life-Threatening)
  Sender: FDA-Public Use
  Company Number: None

PATIENT
  Age: 65 Year
  Sex: Male
  Weight: 117.9352 kg

DRUGS (12)
  1. VANCOMYCIN [Suspect]
     Indication: ANTIBIOTIC PROPHYLAXIS
     Dosage: VANCOMYCIN ONE TIME IV DRIP
     Route: 041
     Dates: start: 20100607, end: 20100607
  2. INSULIN [Concomitant]
  3. LISINOPRIL [Concomitant]
  4. LOVASTATIN [Concomitant]
  5. SINGULAIR [Concomitant]
  6. OXYCONTIN [Concomitant]
  7. PERCOCET [Concomitant]
  8. ALBUTEROL [Concomitant]
  9. SYMBICORT [Concomitant]
  10. ZOLOFT [Concomitant]
  11. SPIRIA [Concomitant]
  12. WARFARIN [Concomitant]

REACTIONS (3)
  - ANAPHYLACTIC REACTION [None]
  - INFUSION RELATED REACTION [None]
  - RESPIRATORY DISTRESS [None]
